FAERS Safety Report 18341178 (Version 1)
Quarter: 2020Q4

REPORT INFORMATION
  Report Type: Spontaneous
  Country: HU (occurrence: HU)
  Receive Date: 20201003
  Receipt Date: 20201003
  Transmission Date: 20210113
  Serious: Yes (Other)
  Sender: FDA-Public Use
  Company Number: HU-TEVA-2020-HU-1834009

PATIENT
  Age: 30 Year
  Sex: Male
  Weight: 93 kg

DRUGS (11)
  1. DICLOFENAC [Suspect]
     Active Substance: DICLOFENAC
     Indication: PRODUCT USED FOR UNKNOWN INDICATION
     Dosage: 450 MILLIGRAM DAILY;  THERAPY START DATE AND END DATE: ASKED BUT UNKNOWN
     Route: 065
  2. SECUKINUMAB. [Suspect]
     Active Substance: SECUKINUMAB
     Indication: PSORIATIC ARTHROPATHY
     Dosage: 150 MG, QW
     Route: 058
     Dates: start: 201911, end: 201912
  3. METHOTREXATE. [Suspect]
     Active Substance: METHOTREXATE
     Indication: PRODUCT USED FOR UNKNOWN INDICATION
     Dosage: 15MG, UNK, THERAPY END DATE: ASKED BUT UNKNOWN
     Route: 065
     Dates: start: 2020
  4. CERTOLIZUMAB PEGOL [Concomitant]
     Active Substance: CERTOLIZUMAB PEGOL
     Indication: PRODUCT USED FOR UNKNOWN INDICATION
     Dosage: UNK
     Route: 065
     Dates: start: 20190226
  5. NIMESULIDE [Concomitant]
     Active Substance: NIMESULIDE
     Indication: PRODUCT USED FOR UNKNOWN INDICATION
     Dosage: 100 MG, BID, 200 MG
     Route: 065
  6. SECUKINUMAB. [Suspect]
     Active Substance: SECUKINUMAB
     Dosage: 300 MG, QMO, THERAPY END DATE: ASKED BUT UNKNOWN
     Route: 065
     Dates: start: 2020
  7. TRAMADOL. [Suspect]
     Active Substance: TRAMADOL
     Indication: PRODUCT USED FOR UNKNOWN INDICATION
     Dosage: UNK, THERAPY START DATE AND END DATE: ASKED BUT UNKNOWN
     Route: 065
  8. METHOTREXATE. [Suspect]
     Active Substance: METHOTREXATE
     Dosage: 10 MG, QW, THERAPY END DATE: ASKED BUT UNKNOWN
     Route: 065
     Dates: end: 2020
  9. ETORICOXIB. [Suspect]
     Active Substance: ETORICOXIB
     Indication: PRODUCT USED FOR UNKNOWN INDICATION
     Dosage: 90 MILLIGRAM DAILY; THERAPY START DATE AND END DATE: ASKED BUT UNKNOWN
     Route: 065
  10. SECUKINUMAB. [Suspect]
     Active Substance: SECUKINUMAB
     Indication: PRODUCT USED FOR UNKNOWN INDICATION
     Dosage: 150 MG, QMO, THERAPY END DATE: ASKED BUT UNKNOWN
     Route: 058
     Dates: end: 2020
  11. DICLOFENAC [Suspect]
     Active Substance: DICLOFENAC
     Indication: ANALGESIC THERAPY
     Dosage: 5 TIMES
     Route: 065

REACTIONS (15)
  - Ankylosing spondylitis [Unknown]
  - Palmoplantar pustulosis [Unknown]
  - Condition aggravated [Unknown]
  - Psoriatic arthropathy [Unknown]
  - Facial paralysis [Unknown]
  - Hypercholesterolaemia [Unknown]
  - Ligament calcification [Unknown]
  - Arthralgia [Unknown]
  - Back pain [Recovering/Resolving]
  - Skin exfoliation [Recovering/Resolving]
  - Spinal pain [Recovered/Resolved]
  - Neck pain [Unknown]
  - Skin lesion [Unknown]
  - Body mass index abnormal [Unknown]
  - Sacroiliitis [Unknown]

NARRATIVE: CASE EVENT DATE: 2008
